FAERS Safety Report 7150660-X (Version None)
Quarter: 2010Q4

REPORT INFORMATION
  Report Type: 
  Country: None (occurrence: None)
  Receive Date: 20101210
  Receipt Date: 20101203
  Transmission Date: 20110411
  Serious: Yes (Other)
  Sender: FDA-Public Use
  Company Number: IT-JNJFOC-20101202252

PATIENT
  Age: 37 Year
  Sex: Female

DRUGS (2)
  1. TOPAMAX [Suspect]
     Indication: ILL-DEFINED DISORDER
     Route: 048
  2. ALCOVER [Suspect]
     Indication: ILL-DEFINED DISORDER
     Route: 048
     Dates: start: 20101203

REACTIONS (2)
  - GENERAL PHYSICAL HEALTH DETERIORATION [None]
  - SELF INJURIOUS BEHAVIOUR [None]
